FAERS Safety Report 21326890 (Version 2)
Quarter: 2022Q4

REPORT INFORMATION
  Report Type: Spontaneous
  Country: ES (occurrence: ES)
  Receive Date: 20220913
  Receipt Date: 20221007
  Transmission Date: 20230113
  Serious: Yes (Other)
  Sender: FDA-Public Use
  Company Number: ES-SA-SAC20220912000063

PATIENT
  Age: 74 Year
  Sex: Male

DRUGS (1)
  1. CAPLACIZUMAB [Suspect]
     Active Substance: CAPLACIZUMAB
     Indication: Thrombotic thrombocytopenic purpura
     Dosage: UNK
     Route: 065
     Dates: start: 20220831, end: 20220902

REACTIONS (1)
  - Haemorrhage intracranial [Unknown]

NARRATIVE: CASE EVENT DATE: 20220902
